FAERS Safety Report 12354544 (Version 2)
Quarter: 2016Q2

REPORT INFORMATION
  Report Type: Report from Study
  Country: MX (occurrence: MX)
  Receive Date: 20160511
  Receipt Date: 20160527
  Transmission Date: 20160815
  Serious: No
  Sender: FDA-Public Use
  Company Number: PHHY2016MX064053

PATIENT
  Sex: Female

DRUGS (2)
  1. CO-DIOVAN [Suspect]
     Active Substance: HYDROCHLOROTHIAZIDE\VALSARTAN
     Indication: HYPERTENSION
     Dosage: 1 DF, BID (VALSARTAN 160 MG AND HYDROCHLOROTHIAZIDE 12.5 MG)
     Route: 048
  2. METFORMIN [Concomitant]
     Active Substance: METFORMIN HYDROCHLORIDE
     Indication: DIABETES MELLITUS
     Dosage: 2 DF(800 MG), (1 AT MORNING AND THE OTHER WITH THE FOOD)
     Route: 065

REACTIONS (2)
  - Blood pressure increased [Unknown]
  - Off label use [Unknown]
